FAERS Safety Report 13939465 (Version 2)
Quarter: 2017Q4

REPORT INFORMATION
  Report Type: Spontaneous
  Country: US (occurrence: US)
  Receive Date: 20170906
  Receipt Date: 20171016
  Transmission Date: 20180320
  Serious: No
  Sender: FDA-Public Use
  Company Number: US-PFIZER INC-2017310349

PATIENT
  Age: 56 Year
  Sex: Female

DRUGS (3)
  1. GENOTROPIN [Suspect]
     Active Substance: SOMATROPIN
     Dosage: 2 MG, UNK
     Dates: start: 20170712
  2. GENOTROPIN [Suspect]
     Active Substance: SOMATROPIN
     Dosage: 0.2 MG, DAILY
     Dates: start: 201707
  3. GENOTROPIN [Suspect]
     Active Substance: SOMATROPIN
     Dosage: DOSE INCREASED

REACTIONS (4)
  - Fatigue [Unknown]
  - Incorrect dose administered [Unknown]
  - Injection site bruising [Unknown]
  - Tremor [Unknown]
